FAERS Safety Report 9575217 (Version 2)
Quarter: 2013Q4

REPORT INFORMATION
  Report Type: Spontaneous
  Country: US (occurrence: US)
  Receive Date: 20131001
  Receipt Date: 20131127
  Transmission Date: 20140711
  Serious: Yes (Other)
  Sender: FDA-Public Use
  Company Number: US-GLAXOSMITHKLINE-A1042846A

PATIENT
  Age: 82 Year
  Sex: Female

DRUGS (2)
  1. FLOVENT [Suspect]
     Indication: COUGH
     Dosage: 1PUFF TWICE PER DAY
     Route: 055
     Dates: start: 20130904, end: 20130911
  2. HEART MEDICATION [Concomitant]

REACTIONS (7)
  - Hypoacusis [Not Recovered/Not Resolved]
  - Tinnitus [Not Recovered/Not Resolved]
  - Nasopharyngitis [Not Recovered/Not Resolved]
  - Cough [Recovered/Resolved]
  - Feeling abnormal [Not Recovered/Not Resolved]
  - Drug ineffective for unapproved indication [Unknown]
  - Product quality issue [Unknown]
